FAERS Safety Report 23191617 (Version 1)
Quarter: 2023Q4

REPORT INFORMATION
  Report Type: Spontaneous
  Country: US (occurrence: None)
  Receive Date: 20231115
  Receipt Date: 20231115
  Transmission Date: 20240110
  Serious: Yes (Other)
  Sender: FDA-Public Use
  Company Number: None

PATIENT
  Age: 40 Year
  Sex: Female
  Weight: 86 kg

DRUGS (1)
  1. INFED [Suspect]
     Active Substance: IRON DEXTRAN

REACTIONS (3)
  - Infusion related reaction [None]
  - Dyspnoea [None]
  - Back pain [None]
